FAERS Safety Report 5588242-3 (Version None)
Quarter: 2008Q1

REPORT INFORMATION
  Report Type: 
  Country: None (occurrence: None)
  Receive Date: 20080109
  Receipt Date: 20080109
  Transmission Date: 20080703
  Serious: Yes (Other)
  Sender: FDA-Public Use
  Company Number: None

PATIENT
  Age: 65 Year
  Sex: Female
  Weight: 58.9676 kg

DRUGS (1)
  1. CIPRO [Suspect]
     Indication: SINUSITIS
     Dates: start: 20050301, end: 20050314

REACTIONS (1)
  - MUSCULOSKELETAL PAIN [None]
